FAERS Safety Report 4628601-6 (Version None)
Quarter: 2005Q2

REPORT INFORMATION
  Report Type: 
  Country: None (occurrence: None)
  Receive Date: 20050404
  Receipt Date: 20050318
  Transmission Date: 20051028
  Serious: Yes (Hospitalization)
  Sender: FDA-Public Use
  Company Number: 10661

PATIENT
  Age: 47 Year
  Sex: Male

DRUGS (8)
  1. MORPHINE [Suspect]
     Indication: PAIN
     Dosage: 10 MG ONCE, IV
     Route: 042
     Dates: start: 20050222, end: 20050222
  2. FENTANYL [Suspect]
     Dosage: 90 MG ONCE, IV
     Route: 042
     Dates: start: 20050222, end: 20050222
  3. DEXAMETHASONE [Suspect]
     Dosage: 41 MG ONCE
     Route: 042
     Dates: start: 20050222, end: 20050222
  4. SEVOFLURANE [Suspect]
     Route: 055
     Dates: start: 20050222, end: 20050222
  5. IBUPROFEN [Concomitant]
  6. LEVOBUPIVACAINE [Concomitant]
  7. CODEINE/PARACETAMOL [Concomitant]
  8. PROCHLORPERAZINE [Concomitant]

REACTIONS (3)
  - NAUSEA [None]
  - POST PROCEDURAL PAIN [None]
  - SOMNOLENCE [None]
